FAERS Safety Report 18418748 (Version 1)
Quarter: 2020Q4

REPORT INFORMATION
  Report Type: Spontaneous
  Country: KR (occurrence: KR)
  Receive Date: 20201023
  Receipt Date: 20201023
  Transmission Date: 20210114
  Serious: Yes (Other)
  Sender: FDA-Public Use
  Company Number: KR-SA-2020SA294779

PATIENT

DRUGS (3)
  1. MYOZYME [Suspect]
     Active Substance: ALGLUCOSIDASE ALFA
     Indication: HYPERTROPHIC CARDIOMYOPATHY
  2. BACTRIM [Concomitant]
     Active Substance: SULFAMETHOXAZOLE\TRIMETHOPRIM
  3. MYOZYME [Suspect]
     Active Substance: ALGLUCOSIDASE ALFA
     Indication: GLYCOGEN STORAGE DISEASE TYPE II
     Route: 042

REACTIONS (9)
  - Neonatal hypoxia [Recovering/Resolving]
  - Respiratory tract infection [Unknown]
  - Nephrolithiasis [Unknown]
  - Speech disorder developmental [Recovering/Resolving]
  - Pain [Unknown]
  - Feeding disorder [Unknown]
  - Weight decreased [Unknown]
  - Motor developmental delay [Recovering/Resolving]
  - General physical health deterioration [Unknown]
